FAERS Safety Report 9369811 (Version 1)
Quarter: 2013Q2

REPORT INFORMATION
  Report Type: Spontaneous
  Country: US (occurrence: None)
  Receive Date: 20130621
  Receipt Date: 20130621
  Transmission Date: 20140414
  Serious: Yes (Hospitalization)
  Sender: FDA-Public Use
  Company Number: 13-F-US-00180

PATIENT
  Age: 83 Year
  Sex: Male
  Weight: 65 kg

DRUGS (5)
  1. FOLOTYN [Suspect]
     Indication: NON-HODGKIN^S LYMPHOMA
     Route: 042
     Dates: start: 20130503, end: 20130503
  2. CYCLOPHOSPHAMIDE (CYCLOPHOSPHAMIDE) [Suspect]
     Indication: NON-HODGKIN^S LYMPHOMA
     Route: 042
     Dates: start: 20130412, end: 20130412
  3. ETOPOSIDE (ETOPOSIDE) [Suspect]
     Indication: NON-HODGKIN^S LYMPHOMA
     Dosage: DAY
     Route: 042
     Dates: start: 20130412, end: 20130412
  4. VINCRISTINE [Suspect]
     Indication: NON-HODGKIN^S LYMPHOMA
     Dosage: DAY
     Route: 042
     Dates: start: 20130412, end: 20130412
  5. PREDNISONE (PREDNISONE) [Suspect]
     Indication: NON-HODGKIN^S LYMPHOMA
     Dosage: DAY
     Route: 042
     Dates: start: 20130412, end: 20130416

REACTIONS (9)
  - Clostridium difficile infection [None]
  - Dehydration [None]
  - Renal failure acute [None]
  - Anaemia [None]
  - Embolism [None]
  - Muscular weakness [None]
  - Oedema peripheral [None]
  - Dermatitis [None]
  - Diarrhoea [None]
